FAERS Safety Report 6062541-3 (Version None)
Quarter: 2009Q1

REPORT INFORMATION
  Report Type: 
  Country: None (occurrence: None)
  Receive Date: 20090202
  Receipt Date: 20090202
  Transmission Date: 20090719
  Serious: No
  Sender: FDA-Public Use
  Company Number: None

PATIENT
  Age: 33 Year
  Sex: Female
  Weight: 90.7194 kg

DRUGS (1)
  1. CYMBALTA [Suspect]
     Indication: BIPOLAR DISORDER
     Dosage: 60MG 1 X DY PO
     Route: 048
     Dates: start: 20050201, end: 20090130

REACTIONS (8)
  - ABASIA [None]
  - DISTURBANCE IN ATTENTION [None]
  - HYPOAESTHESIA FACIAL [None]
  - LIP DISORDER [None]
  - LIP HAEMORRHAGE [None]
  - NERVOUS SYSTEM DISORDER [None]
  - TREATMENT NONCOMPLIANCE [None]
  - VISION BLURRED [None]
